FAERS Safety Report 8890425 (Version 1)
Quarter: 2012Q4

REPORT INFORMATION
  Report Type: 
  Country: US (occurrence: US)
  Receive Date: 20121106
  Receipt Date: 20121106
  Transmission Date: 20130627
  Serious: Yes (Hospitalization)
  Sender: FDA-Public Use
  Company Number: US-GILEAD-2012-0064010

PATIENT
  Age: 93 Year
  Sex: Male

DRUGS (1)
  1. LETAIRIS [Suspect]
     Indication: PRODUCT USED FOR UNKNOWN INDICATION
     Dosage: 5 mg, QD
     Route: 048
     Dates: start: 20110519

REACTIONS (12)
  - Small intestinal stenosis [Unknown]
  - Diarrhoea [Unknown]
  - Ulcer [Unknown]
  - Gastric disorder [Unknown]
  - Chills [Unknown]
  - Eating disorder [Unknown]
  - Eating disorder [Unknown]
  - Chest pain [Unknown]
  - Pain [Unknown]
  - Oesophagitis [Unknown]
  - Vomiting [Unknown]
  - Oropharyngeal pain [Unknown]
